FAERS Safety Report 18259116 (Version 1)
Quarter: 2020Q3

REPORT INFORMATION
  Report Type: Spontaneous
  Country: SI (occurrence: SI)
  Receive Date: 20200911
  Receipt Date: 20200911
  Transmission Date: 20201103
  Serious: Yes (Other)
  Sender: FDA-Public Use
  Company Number: SI-NOVOPROD-751221

PATIENT
  Age: 83 Year
  Sex: Female
  Weight: 90 kg

DRUGS (2)
  1. NOVOMIX 30 [Suspect]
     Active Substance: INSULIN ASPART
     Indication: DIABETES MELLITUS
     Dosage: 45 IU, QD
     Route: 065
  2. NOVOMIX 30 [Suspect]
     Active Substance: INSULIN ASPART
     Dosage: 16 DOSE STEPS IN THE MORNING
     Route: 065

REACTIONS (2)
  - Product dose omission issue [Unknown]
  - Dementia [Unknown]

NARRATIVE: CASE EVENT DATE: 2019
